FAERS Safety Report 7042241-3 (Version None)
Quarter: 2010Q4

REPORT INFORMATION
  Report Type: 
  Country: None (occurrence: None)
  Receive Date: 20101013
  Receipt Date: 20100929
  Transmission Date: 20110411
  Serious: Yes (Hospitalization, Other)
  Sender: FDA-Public Use
  Company Number: US-ABBOTT-10P-163-0675235-00

PATIENT
  Sex: Male
  Weight: 61.29 kg

DRUGS (2)
  1. HUMIRA [Suspect]
     Indication: CROHN'S DISEASE
  2. FLAGYL [Concomitant]
     Indication: HEPATIC INFECTION
     Dates: start: 20100901

REACTIONS (6)
  - ABDOMINAL PAIN [None]
  - APHAGIA [None]
  - CROHN'S DISEASE [None]
  - HEPATIC LESION [None]
  - INTESTINAL OBSTRUCTION [None]
  - WHITE BLOOD CELL COUNT INCREASED [None]
